FAERS Safety Report 8777468 (Version 1)
Quarter: 2012Q4

REPORT INFORMATION
  Report Type: 
  Country: US (occurrence: US)
  Receive Date: 20120911
  Receipt Date: 20120911
  Transmission Date: 20130627
  Serious: No
  Sender: FDA-Public Use
  Company Number: US-PFIZER INC-2012219355

PATIENT
  Age: 77 Year
  Sex: Female
  Weight: 45.8 kg

DRUGS (2)
  1. TOVIAZ [Suspect]
     Indication: HYPERTONIC BLADDER
     Dosage: 8 mg, 1x/day
     Route: 048
     Dates: start: 20120905
  2. BYSTOLIC [Concomitant]
     Indication: HYPERTENSION
     Dosage: 5 mg, UNK

REACTIONS (1)
  - Pollakiuria [Not Recovered/Not Resolved]
